FAERS Safety Report 18096614 (Version 3)
Quarter: 2020Q4

REPORT INFORMATION
  Report Type: Spontaneous
  Country: GB (occurrence: GB)
  Receive Date: 20200731
  Receipt Date: 20201125
  Transmission Date: 20210113
  Serious: Yes (Death)
  Sender: FDA-Public Use
  Company Number: GB-ALEXION-A202011009

PATIENT
  Age: 12 Week
  Sex: Female

DRUGS (3)
  1. SOLIRIS [Suspect]
     Active Substance: ECULIZUMAB
     Indication: OFF LABEL USE
  2. SOLIRIS [Suspect]
     Active Substance: ECULIZUMAB
     Indication: DNA MISMATCH REPAIR PROTEIN GENE MUTATION
     Dosage: UNK
     Route: 065
  3. DEFIBROTIDE [Concomitant]
     Active Substance: DEFIBROTIDE (BOVINE)
     Indication: PRODUCT USED FOR UNKNOWN INDICATION
     Dosage: UNK
     Route: 065

REACTIONS (2)
  - Off label use [Unknown]
  - General physical health deterioration [Fatal]
